FAERS Safety Report 18055712 (Version 4)
Quarter: 2020Q4

REPORT INFORMATION
  Report Type: Report from Study
  Country: US (occurrence: US)
  Receive Date: 20200722
  Receipt Date: 20201119
  Transmission Date: 20210113
  Serious: Yes (Hospitalization, Other)
  Sender: FDA-Public Use
  Company Number: US-BIOGEN-2020BI00895928

PATIENT
  Age: 9 Year
  Sex: Female

DRUGS (37)
  1. BUDESONIDE. [Concomitant]
     Active Substance: BUDESONIDE
     Indication: PRODUCT USED FOR UNKNOWN INDICATION
     Dosage: 0.5 MG/ 2 ML
     Route: 065
     Dates: start: 20171102
  2. CHOLESTYRAMINE. [Concomitant]
     Active Substance: CHOLESTYRAMINE
     Indication: PRODUCT USED FOR UNKNOWN INDICATION
     Dosage: APPLY TO AFFECTED AREA. APPLY TO BOTTOM AS NEEDED.
     Route: 065
  3. CRAN-MAX [Concomitant]
     Indication: PRODUCT USED FOR UNKNOWN INDICATION
     Route: 050
  4. FLUTICASONE PROPIONATE. [Concomitant]
     Active Substance: FLUTICASONE PROPIONATE
     Indication: PRODUCT USED FOR UNKNOWN INDICATION
     Dosage: 50 MCG/ACTUATION 1 SPRAY IN EACH NOSTRIL DAILY
     Route: 045
     Dates: start: 20150427
  5. SLIPPERY ELM [Concomitant]
     Active Substance: ELM
     Indication: PRODUCT USED FOR UNKNOWN INDICATION
     Dosage: 0.25 TEASPOON
     Route: 065
  6. ALBUTEROL. [Concomitant]
     Active Substance: ALBUTEROL
     Indication: PRODUCT USED FOR UNKNOWN INDICATION
     Dosage: 2 MG/5 ML
     Route: 050
     Dates: start: 20190923
  7. SILVER [Concomitant]
     Active Substance: SILVER
     Indication: PRODUCT USED FOR UNKNOWN INDICATION
     Route: 061
  8. SENNA [Concomitant]
     Active Substance: SENNA LEAF\SENNOSIDES\SENNOSIDES A AND B
     Indication: PRODUCT USED FOR UNKNOWN INDICATION
     Dosage: 8.8MG/5ML
     Route: 048
     Dates: start: 20181017
  9. CHOLECALCIFEROL [Concomitant]
     Active Substance: CHOLECALCIFEROL
     Indication: PRODUCT USED FOR UNKNOWN INDICATION
     Route: 050
     Dates: start: 20131122
  10. DEXAMETHASONE. [Concomitant]
     Active Substance: DEXAMETHASONE
     Indication: PRODUCT USED FOR UNKNOWN INDICATION
     Dosage: 0.1%
     Route: 065
     Dates: start: 20191009
  11. FAMOTIDINE. [Concomitant]
     Active Substance: FAMOTIDINE
     Dosage: 40 MG/5 ML
     Route: 048
     Dates: start: 20200706
  12. ZINC SULFATE. [Concomitant]
     Active Substance: ZINC SULFATE
     Dosage: 10 MG ELEMENTAL/ML ORAL SOLUTION (COMPOUND)
     Route: 050
  13. SPINRAZA [Suspect]
     Active Substance: NUSINERSEN
     Indication: SPINAL MUSCULAR ATROPHY
     Route: 037
     Dates: start: 20170324
  14. PROAIR HFA [Concomitant]
     Active Substance: ALBUTEROL SULFATE
     Indication: PRODUCT USED FOR UNKNOWN INDICATION
     Dosage: 90 MCG/ACTUATION HFAA INHALE 2 PUFFS BY MOUTH EVERY FOUR HOURS AS NEEDED
     Route: 065
  15. COENZYME Q10 [Concomitant]
     Active Substance: DIETARY SUPPLEMENT\UBIDECARENONE
     Indication: PRODUCT USED FOR UNKNOWN INDICATION
     Route: 048
  16. SINGULAIR [Concomitant]
     Active Substance: MONTELUKAST SODIUM
     Indication: PRODUCT USED FOR UNKNOWN INDICATION
     Dosage: 4 MG GRPK. 1 PACKET PER DAY
     Route: 050
     Dates: start: 20150430
  17. FAMOTIDINE. [Concomitant]
     Active Substance: FAMOTIDINE
     Dosage: 40 MG/5 ML
     Route: 048
     Dates: start: 20200220
  18. MAGNESIUM CITRATE. [Concomitant]
     Active Substance: MAGNESIUM CITRATE
     Indication: PRODUCT USED FOR UNKNOWN INDICATION
     Route: 050
  19. ELDERBERRY [Concomitant]
     Active Substance: HERBALS
     Indication: PRODUCT USED FOR UNKNOWN INDICATION
     Route: 065
  20. OFLOXACIN. [Concomitant]
     Active Substance: OFLOXACIN
     Indication: PRODUCT USED FOR UNKNOWN INDICATION
     Dosage: 0.3% APPLY TO TRACHEOSTOMA
     Route: 065
     Dates: start: 20181211
  21. FAMOTIDINE. [Concomitant]
     Active Substance: FAMOTIDINE
     Indication: PRODUCT USED FOR UNKNOWN INDICATION
     Dosage: 40 MG/5 ML
     Route: 048
     Dates: start: 20190722
  22. HYDROXYZINE [Concomitant]
     Active Substance: HYDROXYZINE HYDROCHLORIDE
     Indication: PRURITUS
     Dosage: 10 MG/5 ML
     Route: 048
     Dates: start: 20160414
  23. NYSTATIN. [Concomitant]
     Active Substance: NYSTATIN
     Indication: CANDIDA INFECTION
     Dosage: APPLY TO AFFECTED AREA TWO TIMES DAILY. APPLY TO CANDIDA LESIONS UNTIL LESIONS HAVE HEALED.
     Route: 065
  24. PREDNISOLONE ACETATE. [Concomitant]
     Active Substance: PREDNISOLONE ACETATE
     Indication: PRODUCT USED FOR UNKNOWN INDICATION
     Dosage: 1% APPLY 1-2 DROPS TO TRACHEOSTOMA
     Route: 065
     Dates: start: 20181210
  25. SODIUM CHLORIDE. [Concomitant]
     Active Substance: SODIUM CHLORIDE
     Indication: SECRETION DISCHARGE
     Dosage: 3%
     Route: 065
  26. ZINC SULFATE. [Concomitant]
     Active Substance: ZINC SULFATE
     Indication: PRODUCT USED FOR UNKNOWN INDICATION
     Dosage: 10 MG ELEMENTAL/ML ORAL SOLUTION (COMPOUND)
     Route: 050
  27. BIFIDOBACTERIUM INFANTIS [Concomitant]
     Indication: PRODUCT USED FOR UNKNOWN INDICATION
     Dosage: 1.5 BILLION CELL
     Route: 048
     Dates: start: 20200709
  28. ALBUTEROL. [Concomitant]
     Active Substance: ALBUTEROL
     Dosage: INHALE 0.3 ML EVERY 6 HOURS, INCREASED AS NEEDED
     Route: 065
     Dates: start: 20200519
  29. ENEMEEZ [Concomitant]
     Active Substance: DOCUSATE SODIUM
     Indication: PRODUCT USED FOR UNKNOWN INDICATION
     Route: 054
  30. FER-IRON [Concomitant]
     Active Substance: FERROUS SULFATE
     Indication: PRODUCT USED FOR UNKNOWN INDICATION
     Dosage: 15 MG ELEMENTAL/ML . WITH VITAMIN C. DO NOT GIVE WITH MILK PRODUCTS
     Route: 048
     Dates: start: 20140602
  31. LEVOCARNITINE. [Concomitant]
     Active Substance: LEVOCARNITINE
     Indication: PRODUCT USED FOR UNKNOWN INDICATION
     Dosage: 100 MG/ML
     Route: 048
     Dates: start: 20130730
  32. LIDOCAINE-PRILOCAINE [Concomitant]
     Active Substance: LIDOCAINE\PRILOCAINE
     Indication: PREOPERATIVE CARE
     Dosage: 2.5-2.5%
     Route: 065
     Dates: start: 20190612
  33. TOBRAMYCIN. [Concomitant]
     Active Substance: TOBRAMYCIN
     Indication: PRODUCT USED FOR UNKNOWN INDICATION
     Dosage: 40 MG/ML BY NEBULIZATION
     Route: 065
  34. ORAJEL [Concomitant]
     Active Substance: ALLANTOIN\BENZOCAINE\CAMPHOR (NATURAL)\DIMETHICONE\MENTHOL
     Indication: MUCOSAL INFLAMMATION
     Dosage: 20-0.1-0.15%
     Route: 065
     Dates: start: 20200709
  35. ACETAMINOPHEN. [Concomitant]
     Active Substance: ACETAMINOPHEN
     Indication: PAIN
     Route: 050
     Dates: start: 20181019
  36. AFRIN [Concomitant]
     Active Substance: OXYMETAZOLINE
     Indication: HAEMORRHAGE
     Dosage: 0.05% APPLY 2 SPRAYS TO AFFECTED AREA. TO TRACHEOSTOMY SITE AS NEEDED FOR BLEEDING.
     Route: 050
  37. CIPROFLOXACIN HCL [Concomitant]
     Active Substance: CIPROFLOXACIN HYDROCHLORIDE
     Indication: PRODUCT USED FOR UNKNOWN INDICATION
     Dosage: 0.3%  THREE DROPS TO STOMA TWICE DAILY FOR 2 WEEKS
     Route: 065
     Dates: start: 20190910

REACTIONS (7)
  - Seizure [Unknown]
  - Bronchial wall thickening [Unknown]
  - Encephalopathy [Unknown]
  - Bronchitis viral [Unknown]
  - Pleural effusion [Unknown]
  - Biliary dilatation [Recovered/Resolved]
  - Sinus tachycardia [Recovered/Resolved]

NARRATIVE: CASE EVENT DATE: 202007
